FAERS Safety Report 7289984-4 (Version None)
Quarter: 2011Q1

REPORT INFORMATION
  Report Type: 
  Country: None (occurrence: None)
  Receive Date: 20110214
  Receipt Date: 20110201
  Transmission Date: 20110831
  Serious: Yes (Hospitalization)
  Sender: FDA-Public Use
  Company Number: US-ELI_LILLY_AND_COMPANY-US201012005773

PATIENT
  Sex: Female
  Weight: 84.4 kg

DRUGS (19)
  1. GABAPENTIN [Concomitant]
     Dosage: 600 MG, 3/D
     Route: 065
  2. HYDROCODONE [Concomitant]
  3. STOOL SOFTENER [Concomitant]
     Indication: CONSTIPATION
     Dosage: UNK, 2/D
     Route: 065
     Dates: start: 20061103
  4. MULTI-VITAMIN [Concomitant]
     Dosage: UNK, UNKNOWN
     Route: 065
  5. ASPIRIN [Concomitant]
     Indication: CEREBROVASCULAR ACCIDENT
     Dosage: 81 MG, DAILY (1/D)
     Route: 065
  6. COLACE [Concomitant]
     Dosage: UNK, UNKNOWN
     Route: 065
  7. VITAMIN D [Concomitant]
     Indication: VITAMIN D DEFICIENCY
     Dosage: 400 IU, UNKNOWN
     Route: 065
  8. ALBUTEROL [Concomitant]
     Indication: ASTHMA
     Dosage: 90 UG, TWO PUFFS AS NEEDED
     Route: 065
  9. NASONEX [Concomitant]
     Indication: NASAL CONGESTION
     Dosage: UNK, UNKNOWN
     Route: 065
     Dates: start: 20090807
  10. VITAMIN D [Concomitant]
     Dosage: UNK, UNKNOWN
     Route: 065
  11. OXYBUTYNIN [Concomitant]
     Indication: POLLAKIURIA
     Dosage: 2.5 MG, 3/D
     Route: 065
     Dates: start: 20100903
  12. FORTEO [Suspect]
     Indication: OSTEOPOROSIS
     Dosage: 20 UG, DAILY (1/D)
     Dates: start: 20100701
  13. SINGULAIR [Concomitant]
     Indication: ASTHMA
     Dosage: 10 MG, DAILY (1/D)
     Route: 065
     Dates: start: 20090807
  14. MORPHINE [Concomitant]
     Indication: PAIN
     Dosage: 15 MG, DAILY (1/D)
     Route: 065
     Dates: start: 20051025
  15. FENTANYL [Concomitant]
     Indication: PAIN
     Dosage: 100 UG, DAILY (1/D)
     Route: 062
     Dates: start: 20050913
  16. CALCIUM + VITAMIN D [Concomitant]
     Indication: OSTEOPOROSIS
     Dosage: 600/400, 2/D
     Route: 065
  17. ADVAIR DISKUS 100/50 [Concomitant]
     Indication: ASTHMA
     Dosage: UNK, 2/D
  18. VICODIN [Concomitant]
     Indication: PAIN
     Dosage: 5/500 U, 3/D
     Route: 065
  19. NEURONTIN [Concomitant]
     Indication: PAIN
     Dosage: 600 MG, 3/D
     Dates: start: 20071207

REACTIONS (3)
  - ATRIAL FIBRILLATION [None]
  - ARTHRITIS [None]
  - BACK PAIN [None]
